FAERS Safety Report 5318878-6 (Version None)
Quarter: 2007Q2

REPORT INFORMATION
  Report Type: 
  Country: None (occurrence: None)
  Receive Date: 20070508
  Receipt Date: 20070426
  Transmission Date: 20071010
  Serious: Yes (Other)
  Sender: FDA-Public Use
  Company Number: JP-ROCHE-489114

PATIENT
  Age: 11 Year
  Sex: Male
  Weight: 34 kg

DRUGS (5)
  1. TAMIFLU [Suspect]
     Dosage: FORM: DRY SYRUP.
     Route: 048
     Dates: start: 20070315, end: 20070315
  2. PERIACTIN [Concomitant]
     Route: 048
     Dates: start: 20070315, end: 20070319
  3. MUCOSOLVAN [Concomitant]
     Route: 048
     Dates: start: 20070315, end: 20070319
  4. COLDRIN [Concomitant]
     Route: 048
     Dates: start: 20070315, end: 20070319
  5. LOXONIN [Concomitant]
     Dosage: 60 MG DAILY TAKEN AS NEEDED.
     Route: 048
     Dates: start: 20070315, end: 20070315

REACTIONS (1)
  - FEAR [None]
